FAERS Safety Report 6866644-2 (Version None)
Quarter: 2010Q3

REPORT INFORMATION
  Report Type: 
  Country: None (occurrence: None)
  Receive Date: 20100722
  Receipt Date: 20100714
  Transmission Date: 20110219
  Serious: Yes (Hospitalization)
  Sender: FDA-Public Use
  Company Number: US-BAXTER-2010BH017482

PATIENT
  Age: 54 Year
  Sex: Male

DRUGS (1)
  1. DIANEAL [Suspect]
     Indication: RENAL FAILURE CHRONIC
     Route: 033
     Dates: start: 20100301

REACTIONS (7)
  - ABDOMINAL DISTENSION [None]
  - CONSTIPATION [None]
  - DISCOMFORT [None]
  - MUSCULOSKELETAL PAIN [None]
  - OSTEOMYELITIS [None]
  - PAIN [None]
  - PYREXIA [None]
